FAERS Safety Report 8545748-2 (Version None)
Quarter: 2012Q3

REPORT INFORMATION
  Report Type: 
  Country: None (occurrence: None)
  Receive Date: 20120727
  Receipt Date: 20120719
  Transmission Date: 20120928
  Serious: Yes (Disabling)
  Sender: FDA-Public Use
  Company Number: JP-ALLERGAN-1210205US

PATIENT
  Age: 42 Year
  Sex: Female

DRUGS (2)
  1. EPINASTINE HYDROCHLORIDE [Suspect]
     Indication: DERMATITIS ATOPIC
     Dosage: 20 MG, QD
     Route: 048
     Dates: start: 20120131, end: 20120605
  2. HICEE [Suspect]
     Indication: PRODUCT USED FOR UNKNOWN INDICATION
     Dosage: 250 MG, UNK
     Route: 048
     Dates: start: 20120131

REACTIONS (3)
  - HEPATIC FUNCTION ABNORMAL [None]
  - DECREASED APPETITE [None]
  - MALAISE [None]
